FAERS Safety Report 6547461-X (Version None)
Quarter: 2010Q1

REPORT INFORMATION
  Report Type: 
  Country: None (occurrence: None)
  Receive Date: 20100122
  Receipt Date: 20100115
  Transmission Date: 20100710
  Serious: Yes (Other)
  Sender: FDA-Public Use
  Company Number: US-WYE-H13074110

PATIENT
  Age: 75 Year
  Sex: Male
  Weight: 87.17 kg

DRUGS (2)
  1. TORISEL [Suspect]
     Indication: RENAL CELL CARCINOMA
     Route: 042
     Dates: start: 20100115, end: 20100115
  2. TORISEL [Suspect]
     Route: 042
     Dates: start: 20090101, end: 20090101

REACTIONS (3)
  - FLUSHING [None]
  - INFUSION RELATED REACTION [None]
  - NAUSEA [None]
